FAERS Safety Report 15456577 (Version 1)
Quarter: 2018Q4

REPORT INFORMATION
  Report Type: Spontaneous
  Country: JP (occurrence: JP)
  Receive Date: 20181002
  Receipt Date: 20181002
  Transmission Date: 20190204
  Serious: Yes (Other)
  Sender: FDA-Public Use
  Company Number: JP-PFIZER INC-2018383850

PATIENT

DRUGS (1)
  1. SELARA 50MG [Suspect]
     Active Substance: EPLERENONE

REACTIONS (2)
  - Helicobacter infection [Unknown]
  - Nasopharyngitis [Unknown]
